FAERS Safety Report 9722739 (Version 1)
Quarter: 2013Q4

REPORT INFORMATION
  Report Type: Spontaneous
  Country: US (occurrence: US)
  Receive Date: 20131202
  Receipt Date: 20131202
  Transmission Date: 20140711
  Serious: No
  Sender: FDA-Public Use
  Company Number: US-PFIZER INC-2013341702

PATIENT
  Age: 49 Year
  Sex: Male
  Weight: 82.09 kg

DRUGS (7)
  1. XANAX [Suspect]
     Indication: ANXIETY
     Dosage: 2 MG, 3X/DAY
  2. PROZAC [Concomitant]
     Dosage: 40 MG (BY TAKING TWO 20MG), 1X/DAY
     Dates: start: 1987
  3. RITALIN [Concomitant]
     Dosage: UNK, 3X/DAY
  4. AMBIEN [Concomitant]
     Indication: SLEEP DISORDER
     Dosage: UNK
  5. VERAPAMIL [Concomitant]
     Indication: HYPERTENSION
     Dosage: UNK
  6. IMITREX [Concomitant]
     Indication: MIGRAINE
     Dosage: UNK
  7. ULTRAM [Concomitant]
     Indication: MUSCULOSKELETAL CHEST PAIN
     Dosage: UNK, 1X/DAY

REACTIONS (2)
  - Drug abuse [Unknown]
  - Drug ineffective [Unknown]
